FAERS Safety Report 8908281 (Version 3)
Quarter: 2012Q4

REPORT INFORMATION
  Report Type: 
  Country: CA (occurrence: CA)
  Receive Date: 20121113
  Receipt Date: 20121221
  Transmission Date: 20130627
  Serious: Yes (Other)
  Sender: FDA-Public Use
  Company Number: PHHY2012CA104203

PATIENT
  Sex: Female

DRUGS (3)
  1. GLEEVEC [Suspect]
     Indication: CHRONIC MYELOID LEUKAEMIA
     Dosage: 600 mg, QD
     Route: 048
     Dates: start: 200312
  2. GLEEVEC [Suspect]
     Dosage: 400 mg, QD
     Route: 048
  3. DASATINIB [Suspect]

REACTIONS (5)
  - Toxicity to various agents [Unknown]
  - Spinal fracture [Unknown]
  - Osteonecrosis [Unknown]
  - Exophthalmos [Not Recovered/Not Resolved]
  - Diarrhoea [Not Recovered/Not Resolved]
